FAERS Safety Report 9682760 (Version 1)
Quarter: 2013Q4

REPORT INFORMATION
  Report Type: Spontaneous
  Country: US (occurrence: US)
  Receive Date: 20131112
  Receipt Date: 20131112
  Transmission Date: 20140711
  Serious: Yes (Other)
  Sender: FDA-Public Use
  Company Number: US-JNJFOC-20131103245

PATIENT
  Sex: 0

DRUGS (12)
  1. ABCIXIMAB [Suspect]
     Indication: EMBOLISM
     Dosage: INTRAVENOUS BOLUS
     Route: 042
  2. ABCIXIMAB [Suspect]
     Indication: EMBOLISM
     Dosage: INTRA-ARTERIAL INFUSION
     Route: 042
  3. ABCIXIMAB [Suspect]
     Indication: ANTIPLATELET THERAPY
     Dosage: INTRAVENOUS BOLUS
     Route: 042
  4. ABCIXIMAB [Suspect]
     Indication: ANTIPLATELET THERAPY
     Dosage: INTRA-ARTERIAL INFUSION
     Route: 042
  5. ABCIXIMAB [Suspect]
     Indication: ANEURYSM REPAIR
     Dosage: INTRAVENOUS BOLUS
     Route: 042
  6. ABCIXIMAB [Suspect]
     Indication: ANEURYSM REPAIR
     Dosage: INTRA-ARTERIAL INFUSION
     Route: 042
  7. ASPIRIN [Suspect]
     Indication: ANTIPLATELET THERAPY
     Route: 054
  8. ASPIRIN [Suspect]
     Indication: ANTIPLATELET THERAPY
     Route: 054
  9. ASPIRIN [Suspect]
     Indication: ANEURYSM REPAIR
     Route: 054
  10. ASPIRIN [Suspect]
     Indication: ANEURYSM REPAIR
     Route: 054
  11. HEPARIN [Suspect]
     Indication: ANTICOAGULANT THERAPY
     Route: 065
  12. HEPARIN [Suspect]
     Indication: ANEURYSM REPAIR
     Route: 065

REACTIONS (3)
  - Haematoma [Recovered/Resolved]
  - Nervous system disorder [Recovered/Resolved]
  - Off label use [Unknown]
